FAERS Safety Report 6433257-6 (Version None)
Quarter: 2009Q4

REPORT INFORMATION
  Report Type: 
  Country: None (occurrence: None)
  Receive Date: 20091109
  Receipt Date: 20091103
  Transmission Date: 20100525
  Serious: Yes (Death, Hospitalization)
  Sender: FDA-Public Use
  Company Number: US-CELGENEUS-163-21880-09100425

PATIENT
  Sex: Male

DRUGS (3)
  1. REVLIMID [Suspect]
     Indication: AMYLOIDOSIS
     Route: 048
     Dates: start: 20090814
  2. REVLIMID [Suspect]
     Route: 048
     Dates: start: 20090723
  3. REVLIMID [Suspect]
     Route: 048
     Dates: start: 20091001

REACTIONS (2)
  - DEATH [None]
  - PNEUMONIA [None]
